FAERS Safety Report 24715338 (Version 1)
Quarter: 2024Q4

REPORT INFORMATION
  Report Type: Spontaneous
  Country: US (occurrence: US)
  Receive Date: 20241210
  Receipt Date: 20241210
  Transmission Date: 20250114
  Serious: Yes (Other)
  Sender: ALEXION PHARMACEUTICALS
  Company Number: US-AstraZeneca-CH-00759346AM

PATIENT
  Age: 55 Year

DRUGS (4)
  1. LYNPARZA [Suspect]
     Active Substance: OLAPARIB
     Route: 065
  2. LYNPARZA [Suspect]
     Active Substance: OLAPARIB
     Route: 065
  3. LYNPARZA [Suspect]
     Active Substance: OLAPARIB
     Route: 065
  4. LYNPARZA [Suspect]
     Active Substance: OLAPARIB
     Route: 065

REACTIONS (9)
  - Neuropathy peripheral [Unknown]
  - Tongue discomfort [Unknown]
  - Paraesthesia oral [Unknown]
  - Tongue pruritus [Unknown]
  - Feeling hot [Unknown]
  - Pruritus [Unknown]
  - Paraesthesia [Unknown]
  - Skin burning sensation [Unknown]
  - Drug hypersensitivity [Unknown]
